FAERS Safety Report 9022148 (Version 1)
Quarter: 2013Q1

REPORT INFORMATION
  Report Type: Spontaneous
  Country: NL (occurrence: NL)
  Receive Date: 20130118
  Receipt Date: 20130118
  Transmission Date: 20140127
  Serious: Yes (Hospitalization)
  Sender: FDA-Public Use
  Company Number: NL-ASTRAZENECA-2013SE02398

PATIENT
  Age: 21452 Day
  Sex: Female
  Weight: 62 kg

DRUGS (8)
  1. ROSUVASTATINE [Suspect]
     Indication: PROPHYLAXIS
     Route: 048
     Dates: start: 2008, end: 20130108
  2. PIMOZIDE [Concomitant]
     Route: 048
  3. IRBESARTAN [Concomitant]
     Route: 048
  4. METOPROLOL [Concomitant]
     Route: 048
  5. OXAZEPAM [Concomitant]
  6. ACETYLSALICYLZUUR [Concomitant]
     Route: 048
  7. AMLODIPINE TABLET 5MG (MALEAAT) [Concomitant]
     Route: 048
  8. OMEGA 3-6-9 [Concomitant]

REACTIONS (2)
  - Viral infection [Unknown]
  - Rhabdomyolysis [Recovering/Resolving]
